FAERS Safety Report 12375819 (Version 1)
Quarter: 2016Q2

REPORT INFORMATION
  Report Type: Spontaneous
  Country: US (occurrence: None)
  Receive Date: 20160516
  Receipt Date: 20160516
  Transmission Date: 20160815
  Serious: Yes (Disabling)
  Sender: FDA-Public Use
  Company Number: None

PATIENT
  Age: 53 Year
  Sex: Female
  Weight: 81.65 kg

DRUGS (2)
  1. MULTI [Concomitant]
  2. LEVAQUIN [Suspect]
     Active Substance: LEVOFLOXACIN
     Indication: INFECTION
     Route: 048
     Dates: start: 20140803, end: 20140816

REACTIONS (10)
  - Gastrointestinal disorder [None]
  - Arthralgia [None]
  - Product quality issue [None]
  - Musculoskeletal disorder [None]
  - Pain [None]
  - Gait disturbance [None]
  - Fibromyalgia [None]
  - Tendon pain [None]
  - Unevaluable event [None]
  - Feeling abnormal [None]

NARRATIVE: CASE EVENT DATE: 20140801
